FAERS Safety Report 5198090-4 (Version None)
Quarter: 2007Q1

REPORT INFORMATION
  Report Type: 
  Country: None (occurrence: None)
  Receive Date: 20070104
  Receipt Date: 20061229
  Transmission Date: 20070707
  Serious: Yes (Other)
  Sender: FDA-Public Use
  Company Number: DE-AVENTIS-200613764DE

PATIENT
  Age: 71 Year
  Sex: Female
  Weight: 50 kg

DRUGS (14)
  1. TAVANIC [Suspect]
     Indication: LEUKOPENIA
     Route: 048
     Dates: start: 20061001, end: 20061012
  2. TAVANIC [Suspect]
     Indication: PYREXIA
     Route: 048
     Dates: start: 20061001, end: 20061012
  3. DOCETAXEL [Suspect]
     Indication: LUNG ADENOCARCINOMA METASTATIC
     Route: 042
     Dates: start: 20060928, end: 20060928
  4. FORTECORTIN                        /00016001/ [Suspect]
     Indication: PREMEDICATION
     Dates: start: 20060927, end: 20060929
  5. NEUPOGEN [Concomitant]
     Indication: LEUKOPENIA
     Dosage: DOSE: 1-0-0
     Route: 058
     Dates: start: 20061004, end: 20061006
  6. NEUPOGEN [Concomitant]
     Indication: PYREXIA
     Dosage: DOSE: 1-0-0
     Route: 058
     Dates: start: 20061004, end: 20061006
  7. NAVOBAN [Concomitant]
     Indication: PREMEDICATION
     Route: 042
     Dates: start: 20060928, end: 20060928
  8. TAVEGIL                            /00137201/ [Concomitant]
     Indication: PREMEDICATION
     Route: 042
     Dates: start: 20060928, end: 20060928
  9. RANITIDINE HCL [Concomitant]
     Indication: PREMEDICATION
     Route: 042
     Dates: start: 20060928, end: 20060928
  10. ASPIRIN [Concomitant]
     Dosage: DOSE: 1-0-0
  11. SORTIS                             /01326101/ [Concomitant]
     Dosage: DOSE: 0-0-1
  12. BLOPRESS [Concomitant]
     Dosage: DOSE: 0.5-0-0
  13. BELOC                              /00376903/ [Concomitant]
     Dosage: DOSE: 0.5-0-0
  14. DALMADORM [Concomitant]
     Dosage: DOSE: 0-0-1

REACTIONS (3)
  - LEUKOPENIA [None]
  - PYREXIA [None]
  - TENDON RUPTURE [None]
